FAERS Safety Report 6033314-2 (Version None)
Quarter: 2009Q1

REPORT INFORMATION
  Report Type: 
  Country: None (occurrence: None)
  Receive Date: 20090109
  Receipt Date: 20090107
  Transmission Date: 20090719
  Serious: Yes (Hospitalization)
  Sender: FDA-Public Use
  Company Number: JP-ELI_LILLY_AND_COMPANY-JP200901000864

PATIENT
  Age: 75 Year
  Sex: Female

DRUGS (2)
  1. GEMZAR [Suspect]
     Indication: METASTASES TO LUNG
     Dosage: UNK, UNK
     Route: 042
  2. TS 1 /JPN/ [Concomitant]
     Indication: METASTASES TO LUNG
     Dosage: UNK, UNK
     Route: 048

REACTIONS (2)
  - HEPATIC FAILURE [None]
  - PORTAL VEIN THROMBOSIS [None]
